FAERS Safety Report 6045298-1 (Version None)
Quarter: 2009Q1

REPORT INFORMATION
  Report Type: 
  Country: None (occurrence: None)
  Receive Date: 20090121
  Receipt Date: 20090112
  Transmission Date: 20090719
  Serious: Yes (Other)
  Sender: FDA-Public Use
  Company Number: PHEH2007US13872

PATIENT
  Sex: Female

DRUGS (10)
  1. AREDIA [Suspect]
     Indication: BREAST CANCER
     Dosage: UNK
     Dates: end: 20020101
  2. ZOMETA [Suspect]
     Indication: BREAST CANCER
     Dosage: UNK
     Dates: start: 20020101
  3. FASLODEX [Concomitant]
  4. ARANESP [Concomitant]
  5. ARIMIDEX [Concomitant]
     Dosage: UNK
     Dates: start: 20020101
  6. COUMADIN [Concomitant]
  7. ADRIAMYCIN PFS [Concomitant]
     Dosage: UNK
     Dates: start: 19971201
  8. TAXOTERE [Concomitant]
     Dosage: UNK
     Dates: start: 19971201
  9. TAMOXIFEN CITRATE [Concomitant]
     Dosage: UNK
     Dates: start: 19971201
  10. ASPIRIN [Concomitant]
     Dosage: UNK
     Dates: start: 19970101

REACTIONS (21)
  - ANHEDONIA [None]
  - ANXIETY [None]
  - ARTHRALGIA [None]
  - BONE LESION [None]
  - BONE PAIN [None]
  - DEFORMITY [None]
  - DISCOMFORT [None]
  - EMOTIONAL DISTRESS [None]
  - INFECTION [None]
  - LIFE EXPECTANCY SHORTENED [None]
  - MALIGNANT NEOPLASM PROGRESSION [None]
  - METASTASES TO BONE [None]
  - METASTASES TO CENTRAL NERVOUS SYSTEM [None]
  - METASTASES TO SPINE [None]
  - MUSCULOSKELETAL DISCOMFORT [None]
  - OSTEONECROSIS [None]
  - OSTEOSCLEROSIS [None]
  - PAIN [None]
  - PLEURAL EFFUSION [None]
  - PLEURODESIS [None]
  - RIB FRACTURE [None]
